FAERS Safety Report 26115332 (Version 1)
Quarter: 2025Q4

REPORT INFORMATION
  Report Type: Spontaneous
  Country: US (occurrence: US)
  Receive Date: 20251203
  Receipt Date: 20251203
  Transmission Date: 20260118
  Serious: Yes (Hospitalization, Other)
  Sender: LUPIN
  Company Number: US-LUPIN PHARMACEUTICALS INC.-2025-10800

PATIENT
  Age: 84 Year
  Sex: Male

DRUGS (2)
  1. METRONIDAZOLE [Suspect]
     Active Substance: METRONIDAZOLE
     Indication: Cholangitis
     Dosage: 500 MILLIGRAM, BID
     Route: 065
  2. CEFUROXIME [Suspect]
     Active Substance: CEFUROXIME
     Indication: Cholangitis
     Dosage: 500 MILLIGRAM, BID
     Route: 065

REACTIONS (11)
  - Toxicity to various agents [Recovered/Resolved]
  - Ataxia [Recovered/Resolved]
  - Vertigo positional [Recovered/Resolved]
  - Paraesthesia [Recovered/Resolved]
  - Neurotoxicity [Recovered/Resolved]
  - Asthenia [Recovered/Resolved]
  - Dizziness [Recovered/Resolved]
  - Decreased appetite [Recovered/Resolved]
  - Nausea [Recovered/Resolved]
  - Vomiting [Recovered/Resolved]
  - Off label use [Unknown]
